FAERS Safety Report 10281045 (Version 1)
Quarter: 2014Q3

REPORT INFORMATION
  Report Type: Spontaneous
  Country: US (occurrence: None)
  Receive Date: 20140702
  Receipt Date: 20140702
  Transmission Date: 20150326
  Serious: Yes (Life-Threatening, Hospitalization, Disabling)
  Sender: FDA-Public Use
  Company Number: None

PATIENT
  Age: 63 Year
  Sex: Female
  Weight: 49.9 kg

DRUGS (14)
  1. MITRAZAPINE 15 MG HS [Concomitant]
  2. COENZYME [Concomitant]
  3. SIMVASTATIN 10 MG HS [Concomitant]
  4. LANSOPRAZOLE. [Concomitant]
     Active Substance: LANSOPRAZOLE
  5. ORTHO VISC - HIGH MOLECULAR WEIGHT HYALURONAN [Suspect]
     Active Substance: HYALURONATE SODIUM
     Indication: ARTHRALGIA
     Dosage: ULTRASOUND GUIDED INJECTION
     Dates: start: 20140116, end: 20140116
  6. NORVASC 10/325 [Concomitant]
  7. FISH OIL [Concomitant]
     Active Substance: FISH OIL
  8. GLUCOSAMINE  CHONDROITIN [Concomitant]
     Active Substance: CHONDROITIN SULFATE (BOVINE)\GLUCOSAMINE HYDROCHLORIDE
  9. MULTI VIT [Concomitant]
  10. FERROUS SULFATE [Concomitant]
     Active Substance: FERROUS SULFATE\FERROUS SULFATE, DRIED
  11. NAPROXEN. [Concomitant]
     Active Substance: NAPROXEN
  12. ULTRACE [Concomitant]
     Active Substance: PANCRELIPASE
  13. LORATADINE. [Concomitant]
     Active Substance: LORATADINE
  14. ASA [Concomitant]
     Active Substance: ASPIRIN

REACTIONS (3)
  - Necrotising fasciitis [None]
  - Muscle abscess [None]
  - Sepsis [None]

NARRATIVE: CASE EVENT DATE: 20140116
